FAERS Safety Report 5150947-6 (Version None)
Quarter: 2006Q4

REPORT INFORMATION
  Report Type: 
  Country: None (occurrence: None)
  Receive Date: 20061115
  Receipt Date: 20061107
  Transmission Date: 20070319
  Serious: Yes (Hospitalization)
  Sender: FDA-Public Use
  Company Number: JP-JNJFOC-20060805541

PATIENT
  Sex: Male
  Weight: 40 kg

DRUGS (11)
  1. REMICADE [Suspect]
     Route: 042
  2. REMICADE [Suspect]
     Route: 042
  3. REMICADE [Suspect]
     Route: 042
  4. REMICADE [Suspect]
     Route: 042
  5. REMICADE [Suspect]
     Route: 042
  6. REMICADE [Suspect]
     Route: 042
  7. REMICADE [Suspect]
     Route: 042
  8. REMICADE [Suspect]
     Indication: CROHN'S DISEASE
     Route: 042
  9. IMURAN [Suspect]
     Indication: CROHN'S DISEASE
     Route: 048
  10. PREDONINE [Suspect]
     Indication: CROHN'S DISEASE
     Route: 048
  11. PENTASA [Concomitant]
     Dosage: 6 DOSES= 6 TAB
     Route: 048

REACTIONS (2)
  - FUNGAEMIA [None]
  - PNEUMONIA [None]
